FAERS Safety Report 25497517 (Version 1)
Quarter: 2025Q3

REPORT INFORMATION
  Report Type: Spontaneous
  Country: JP (occurrence: JP)
  Receive Date: 20250701
  Receipt Date: 20250701
  Transmission Date: 20251020
  Serious: Yes (Life-Threatening, Hospitalization)
  Sender: ACCORD
  Company Number: JP-MLMSERVICE-20250616-PI542255-00082-1

PATIENT
  Age: 5 Year
  Sex: Female
  Weight: 11.6 kg

DRUGS (3)
  1. CARBOPLATIN [Suspect]
     Active Substance: CARBOPLATIN
     Indication: Ovarian dysgerminoma stage I
  2. ETOPOSIDE [Suspect]
     Active Substance: ETOPOSIDE
     Indication: Ovarian dysgerminoma stage I
  3. BLEOMYCIN [Suspect]
     Active Substance: BLEOMYCIN SULFATE
     Indication: Ovarian dysgerminoma stage I

REACTIONS (8)
  - Drug-induced liver injury [Recovered/Resolved]
  - Nephropathy toxic [Unknown]
  - Respiratory failure [Recovering/Resolving]
  - Myelosuppression [Recovered/Resolved]
  - Venoocclusive liver disease [Recovered/Resolved]
  - Chronic hepatic failure [Recovered/Resolved]
  - Acute hepatic failure [Recovered/Resolved]
  - Hepatic encephalopathy [Unknown]
